FAERS Safety Report 13946545 (Version 1)
Quarter: 2017Q3

REPORT INFORMATION
  Report Type: Spontaneous
  Country: US (occurrence: US)
  Receive Date: 20170907
  Receipt Date: 20170907
  Transmission Date: 20171128
  Serious: Yes (Life-Threatening, Disabling, Other)
  Sender: FDA-Public Use
  Company Number: US-TEVA-804084USA

PATIENT
  Sex: Male

DRUGS (1)
  1. AMIODARONE [Suspect]
     Active Substance: AMIODARONE
     Indication: ATRIAL FIBRILLATION
     Route: 065

REACTIONS (21)
  - Dyspnoea [Unknown]
  - Fatigue [Unknown]
  - Hepatic function abnormal [Unknown]
  - Renal impairment [Unknown]
  - Cough [Unknown]
  - Cardiac failure congestive [Unknown]
  - Oedema [Unknown]
  - Dyspnoea exertional [Unknown]
  - Adverse event [Unknown]
  - Toxicity to various agents [Unknown]
  - Pulmonary toxicity [Unknown]
  - Amnesia [Unknown]
  - Wheezing [Unknown]
  - Off label use [Unknown]
  - Chest pain [Unknown]
  - Skin lesion [Unknown]
  - Anaemia [Unknown]
  - Contusion [Unknown]
  - Asthenia [Unknown]
  - Haemorrhage [Unknown]
  - Nephropathy [Unknown]
